FAERS Safety Report 7527839-8 (Version None)
Quarter: 2011Q2

REPORT INFORMATION
  Report Type: 
  Country: None (occurrence: None)
  Receive Date: 20110513
  Receipt Date: 20110315
  Transmission Date: 20111010
  Serious: Yes (Hospitalization)
  Sender: FDA-Public Use
  Company Number: 2011PL000043

PATIENT
  Sex: Male

DRUGS (1)
  1. IMURAN [Suspect]
     Indication: COLITIS ULCERATIVE
     Dates: start: 20101214, end: 20101223

REACTIONS (8)
  - HYPERSENSITIVITY [None]
  - VOMITING [None]
  - PYREXIA [None]
  - NAUSEA [None]
  - WEIGHT DECREASED [None]
  - CHILLS [None]
  - JAUNDICE [None]
  - RASH [None]
